FAERS Safety Report 13055846 (Version 2)
Quarter: 2017Q1

REPORT INFORMATION
  Report Type: Report from Study
  Country: CN (occurrence: CN)
  Receive Date: 20161222
  Receipt Date: 20170120
  Transmission Date: 20170428
  Serious: No
  Sender: FDA-Public Use
  Company Number: PHHY2016CN175236

PATIENT
  Age: 30 Year
  Sex: Female

DRUGS (1)
  1. SEBIVO [Suspect]
     Active Substance: TELBIVUDINE
     Indication: VIRAL INFECTION
     Dosage: 600 MG, QD
     Route: 048
     Dates: start: 201601

REACTIONS (1)
  - Drug resistance [Recovering/Resolving]

NARRATIVE: CASE EVENT DATE: 20161116
